FAERS Safety Report 4556356-2 (Version None)
Quarter: 2005Q1

REPORT INFORMATION
  Report Type: 
  Country: None (occurrence: None)
  Receive Date: 20050103
  Receipt Date: 20040813
  Transmission Date: 20050727
  Serious: Yes (Other)
  Sender: FDA-Public Use
  Company Number: 2004UW17223

PATIENT
  Age: 67 Year
  Sex: Male
  Weight: 77.1115 kg

DRUGS (4)
  1. CRESTOR [Suspect]
     Indication: BLOOD CHOLESTEROL INCREASED
     Dosage: 10 MG QD PO
     Route: 048
  2. DARVOCET-N 100 [Concomitant]
  3. NEURONTIN [Concomitant]
  4. PREVACID [Concomitant]

REACTIONS (3)
  - BURNING SENSATION [None]
  - MICTURITION DISORDER [None]
  - RENAL PAIN [None]
